FAERS Safety Report 9669515 (Version 1)
Quarter: 2013Q4

REPORT INFORMATION
  Report Type: Spontaneous
  Country: US (occurrence: None)
  Receive Date: 20131104
  Receipt Date: 20131104
  Transmission Date: 20140711
  Serious: Yes (Life-Threatening, Hospitalization, Disabling)
  Sender: FDA-Public Use
  Company Number: None

PATIENT
  Age: 45 Year
  Sex: Female
  Weight: 87.09 kg

DRUGS (3)
  1. REMERON [Suspect]
     Indication: DEPRESSION
     Dosage: 1 PILL
     Route: 048
     Dates: start: 20100601, end: 20131103
  2. REMERON [Suspect]
     Indication: NERVOUS SYSTEM DISORDER
     Dosage: 1 PILL
     Route: 048
     Dates: start: 20100601, end: 20131103
  3. GEODON [Suspect]
     Indication: BIPOLAR DISORDER
     Dosage: 1 PILL
     Route: 048
     Dates: start: 20070510, end: 20100720

REACTIONS (2)
  - Constipation [None]
  - Abdominal pain [None]
